FAERS Safety Report 6204236-9 (Version None)
Quarter: 2009Q2

REPORT INFORMATION
  Report Type: 
  Country: None (occurrence: None)
  Receive Date: 20090526
  Receipt Date: 20090526
  Transmission Date: 20091009
  Serious: Yes (Other)
  Sender: FDA-Public Use
  Company Number: None

PATIENT
  Age: 79 Year
  Sex: Female
  Weight: 74.8435 kg

DRUGS (1)
  1. ADVAIR DISKUS 100/50 [Suspect]
     Indication: RESPIRATORY DISORDER
     Dosage: 250/50 1 PUFF, TWICE DAIL
     Dates: start: 20090510, end: 20090513

REACTIONS (4)
  - DRUG HYPERSENSITIVITY [None]
  - PHOTOPSIA [None]
  - PRURITUS [None]
  - URTICARIA [None]
